FAERS Safety Report 4388555-7 (Version None)
Quarter: 2004Q2

REPORT INFORMATION
  Report Type: 
  Country: None (occurrence: None)
  Receive Date: 20040624
  Receipt Date: 20040616
  Transmission Date: 20050107
  Serious: Yes (Hospitalization)
  Sender: FDA-Public Use
  Company Number: 601252

PATIENT
  Age: 29 Year
  Sex: Female
  Weight: 68 kg

DRUGS (4)
  1. POLYGAM S/D [Suspect]
     Indication: IDIOPATHIC THROMBOCYTOPENIC PURPURA
     Dosage: 70 GM; QD; INTRAVENOUS
     Route: 042
     Dates: start: 20040505, end: 20040506
  2. TYLENOL [Concomitant]
  3. ZOFRAN [Concomitant]
  4. BENADRYL [Concomitant]

REACTIONS (9)
  - CHEST DISCOMFORT [None]
  - FEELING ABNORMAL [None]
  - HEADACHE [None]
  - HEPATIC FAILURE [None]
  - HEPATITIS ACUTE [None]
  - MOVEMENT DISORDER [None]
  - PAIN [None]
  - PHARYNGOLARYNGEAL PAIN [None]
  - TREATMENT NONCOMPLIANCE [None]
